FAERS Safety Report 24885995 (Version 1)
Quarter: 2025Q1

REPORT INFORMATION
  Report Type: Spontaneous
  Country: US (occurrence: US)
  Receive Date: 20250125
  Receipt Date: 20250125
  Transmission Date: 20250408
  Serious: Yes (Other)
  Sender: ACCORD
  Company Number: US-Accord-465970

PATIENT
  Age: 68 Year
  Sex: Female

DRUGS (3)
  1. ERLOTINIB HYDROCHLORIDE [Suspect]
     Active Substance: ERLOTINIB HYDROCHLORIDE
     Indication: Lung adenocarcinoma
     Route: 048
  2. ERLOTINIB HYDROCHLORIDE [Suspect]
     Active Substance: ERLOTINIB HYDROCHLORIDE
     Indication: Metastases to liver
     Route: 048
  3. ERLOTINIB HYDROCHLORIDE [Suspect]
     Active Substance: ERLOTINIB HYDROCHLORIDE
     Indication: Metastases to adrenals
     Route: 048

REACTIONS (5)
  - Perioral dermatitis [Recovered/Resolved]
  - Scleroderma-like reaction [Recovered/Resolved]
  - Rash pustular [Recovered/Resolved]
  - Dermatitis acneiform [Recovered/Resolved]
  - Xerosis [Recovered/Resolved]
